FAERS Safety Report 6222048-7 (Version None)
Quarter: 2009Q2

REPORT INFORMATION
  Report Type: 
  Country: None (occurrence: None)
  Receive Date: 20090608
  Receipt Date: 20090608
  Transmission Date: 20091009
  Serious: Yes (Disabling, Other)
  Sender: FDA-Public Use
  Company Number: None

PATIENT
  Sex: Female
  Weight: 39.9165 kg

DRUGS (7)
  1. DIVALPROEX SODIUM EXTENDED RELEASE [Suspect]
     Indication: CONVULSION
     Dosage: 500MG ER BID PO  6 DOSES
     Route: 048
  2. CARNITOR [Concomitant]
  3. PRILOSEC [Concomitant]
  4. MULTI-VITAMIN [Concomitant]
  5. FISH OIL [Concomitant]
  6. CLONIDINE [Concomitant]
  7. MELATONIN [Concomitant]

REACTIONS (2)
  - GRAND MAL CONVULSION [None]
  - PRODUCT SUBSTITUTION ISSUE [None]
